FAERS Safety Report 23338709 (Version 1)
Quarter: 2023Q4

REPORT INFORMATION
  Report Type: Spontaneous
  Country: US (occurrence: US)
  Receive Date: 20231226
  Receipt Date: 20231226
  Transmission Date: 20240109
  Serious: Yes (Life-Threatening, Hospitalization, Other)
  Sender: FDA-Public Use
  Company Number: US-FreseniusKabi-FK202321072

PATIENT
  Age: 48 Year
  Sex: Male

DRUGS (2)
  1. HYDROMORPHONE [Suspect]
     Active Substance: HYDROMORPHONE
     Indication: Postoperative care
  2. OXYCODONE [Suspect]
     Active Substance: OXYCODONE
     Indication: Postoperative care

REACTIONS (1)
  - Anaphylactic reaction [Unknown]
